FAERS Safety Report 8519488-X (Version None)
Quarter: 2012Q3

REPORT INFORMATION
  Report Type: 
  Country: None (occurrence: None)
  Receive Date: 20120718
  Receipt Date: 20120712
  Transmission Date: 20120928
  Serious: Yes (Other)
  Sender: FDA-Public Use
  Company Number: CA-JNJFOC-20120101429

PATIENT
  Sex: Female
  Weight: 49.9 kg

DRUGS (5)
  1. ACTONEL [Concomitant]
     Indication: OSTEOPOROSIS
     Route: 048
  2. SIMPONI [Suspect]
     Indication: RHEUMATOID ARTHRITIS
     Route: 058
     Dates: start: 20110712, end: 20120102
  3. PREDNISONE [Concomitant]
     Indication: RHEUMATOID ARTHRITIS
     Dates: start: 20090101
  4. APO-TRIAZIDE [Concomitant]
     Indication: HYPERTENSION
     Route: 048
  5. CALCITE [Concomitant]
     Route: 048

REACTIONS (1)
  - HERPES ZOSTER [None]
